FAERS Safety Report 19666002 (Version 2)
Quarter: 2021Q3

REPORT INFORMATION
  Report Type: Report from Study
  Country: US (occurrence: US)
  Receive Date: 20210806
  Receipt Date: 20210917
  Transmission Date: 20211014
  Serious: Yes (Other)
  Sender: FDA-Public Use
  Company Number: US-BIOGEN-2021BI01031013

PATIENT
  Sex: Female

DRUGS (3)
  1. VUMERITY [Suspect]
     Active Substance: DIROXIMEL FUMARATE
     Route: 065
     Dates: start: 20210815
  2. VUMERITY [Suspect]
     Active Substance: DIROXIMEL FUMARATE
     Route: 065
     Dates: start: 20210701, end: 20210724
  3. VUMERITY [Suspect]
     Active Substance: DIROXIMEL FUMARATE
     Indication: MULTIPLE SCLEROSIS
     Route: 065

REACTIONS (8)
  - Underdose [Unknown]
  - Malaise [Unknown]
  - Diarrhoea [Recovered/Resolved]
  - Pulmonary oedema [Not Recovered/Not Resolved]
  - Vomiting [Recovered/Resolved]
  - Cardiac valve disease [Unknown]
  - Drug intolerance [Unknown]
  - Memory impairment [Unknown]
